FAERS Safety Report 5103922-1 (Version None)
Quarter: 2006Q3

REPORT INFORMATION
  Report Type: 
  Country: None (occurrence: None)
  Receive Date: 20060913
  Receipt Date: 20060905
  Transmission Date: 20061208
  Serious: Yes (Death)
  Sender: FDA-Public Use
  Company Number: US-JNJFOC-20060901962

PATIENT
  Age: 39 Year
  Sex: Female

DRUGS (1)
  1. FENTANYL [Suspect]
     Indication: DRUG USE FOR UNKNOWN INDICATION
     Route: 062

REACTIONS (11)
  - BRAIN SCAN ABNORMAL [None]
  - CYANOSIS [None]
  - DEPRESSED LEVEL OF CONSCIOUSNESS [None]
  - HEART RATE INCREASED [None]
  - INTENTIONAL DRUG MISUSE [None]
  - LETHARGY [None]
  - MYDRIASIS [None]
  - OVERDOSE [None]
  - PUPIL FIXED [None]
  - PYREXIA [None]
  - VOMITING [None]
